FAERS Safety Report 15740983 (Version 1)
Quarter: 2018Q4

REPORT INFORMATION
  Report Type: Spontaneous
  Country: US (occurrence: US)
  Receive Date: 20181219
  Receipt Date: 20181219
  Transmission Date: 20190205
  Serious: Yes (Other)
  Sender: FDA-Public Use
  Company Number: US-SAKK-2018SA342518AA

PATIENT
  Age: 63 Year

DRUGS (1)
  1. DUPIXENT [Suspect]
     Active Substance: DUPILUMAB
     Dosage: 300 MG, QOW
     Dates: start: 2018

REACTIONS (4)
  - HIV infection [Unknown]
  - Dermatitis atopic [Unknown]
  - Joint stiffness [Unknown]
  - Pruritus [Unknown]
